FAERS Safety Report 7206288-6 (Version None)
Quarter: 2011Q1

REPORT INFORMATION
  Report Type: 
  Country: None (occurrence: None)
  Receive Date: 20110103
  Receipt Date: 20101222
  Transmission Date: 20110831
  Serious: Yes (Other)
  Sender: FDA-Public Use
  Company Number: PHFR2010GB06037

PATIENT

DRUGS (1)
  1. EXELON [Suspect]
     Dosage: 1.5 MG, BID
     Route: 065

REACTIONS (1)
  - INFECTION [None]
